FAERS Safety Report 15982330 (Version 4)
Quarter: 2019Q1

REPORT INFORMATION
  Report Type: Spontaneous
  Country: CO (occurrence: CO)
  Receive Date: 20190219
  Receipt Date: 20190327
  Transmission Date: 20190418
  Serious: Yes (Hospitalization, Other)
  Sender: FDA-Public Use
  Company Number: CO-BIOMARINAP-CO-2019-122058

PATIENT
  Age: 16 Year
  Sex: Male
  Weight: 22 kg

DRUGS (1)
  1. NAGLAZYME [Suspect]
     Active Substance: GALSULFASE
     Indication: PRODUCT USED FOR UNKNOWN INDICATION
     Dosage: 25 MILLIGRAM, QW
     Route: 042
     Dates: start: 20120809

REACTIONS (2)
  - Respiratory distress [Recovering/Resolving]
  - Tracheostomy malfunction [Not Recovered/Not Resolved]

NARRATIVE: CASE EVENT DATE: 20190214
